FAERS Safety Report 10267014 (Version 1)
Quarter: 2014Q2

REPORT INFORMATION
  Report Type: Report from Study
  Country: US (occurrence: US)
  Receive Date: 20140630
  Receipt Date: 20140630
  Transmission Date: 20141212
  Serious: Yes (Hospitalization)
  Sender: FDA-Public Use
  Company Number: US-ROCHE-1369567

PATIENT
  Sex: Male
  Weight: 71.4 kg

DRUGS (8)
  1. XOLAIR [Suspect]
     Indication: ASTHMA
     Route: 065
  2. XOLAIR [Suspect]
     Dosage: ONCE EVERY 14 DAYS FOR 5 YEARS
     Route: 065
  3. MYCOPHENOLATE MOFETIL [Suspect]
     Indication: PRODUCT USED FOR UNKNOWN INDICATION
     Route: 065
  4. ZITHROMAX [Concomitant]
  5. SINGULAIR [Concomitant]
  6. CREON [Concomitant]
  7. ZYVOX [Concomitant]
  8. METHOTREXATE [Concomitant]
     Route: 065

REACTIONS (3)
  - Malaise [Unknown]
  - Weight increased [Unknown]
  - Sputum discoloured [Unknown]
